FAERS Safety Report 6145042-3 (Version None)
Quarter: 2009Q2

REPORT INFORMATION
  Report Type: 
  Country: None (occurrence: None)
  Receive Date: 20090406
  Receipt Date: 20090325
  Transmission Date: 20091009
  Serious: Yes (Other)
  Sender: FDA-Public Use
  Company Number: BR-PFIZER INC-2009190326

PATIENT

DRUGS (7)
  1. SERTRALINE HCL [Suspect]
     Indication: POST-TRAUMATIC STRESS DISORDER
     Dosage: 50 MG, UNK
  2. SERTRALINE HCL [Suspect]
     Indication: SCHIZOAFFECTIVE DISORDER
  3. CLOZAPINE [Suspect]
     Dosage: 800 MG, UNK
  4. VALPROIC ACID [Suspect]
     Indication: POST-TRAUMATIC STRESS DISORDER
     Dosage: 2 G, UNK
  5. VALPROIC ACID [Suspect]
     Indication: SCHIZOAFFECTIVE DISORDER
  6. LORAZEPAM [Suspect]
     Indication: POST-TRAUMATIC STRESS DISORDER
     Dosage: 6 MG, UNK
  7. LORAZEPAM [Suspect]
     Indication: SCHIZOAFFECTIVE DISORDER

REACTIONS (3)
  - DISEASE PROGRESSION [None]
  - DRUG EFFECT DECREASED [None]
  - SUICIDAL IDEATION [None]
